FAERS Safety Report 19407559 (Version 1)
Quarter: 2021Q2

REPORT INFORMATION
  Report Type: Spontaneous
  Country: US (occurrence: US)
  Receive Date: 20210611
  Receipt Date: 20210611
  Transmission Date: 20210717
  Serious: Yes (Other)
  Sender: FDA-Public Use
  Company Number: US-ROCHE-2651744

PATIENT
  Sex: Female

DRUGS (10)
  1. LOESTRIN NOS [Concomitant]
     Active Substance: ETHINYL ESTRADIOL\NORETHINDRONE ACETATE
  2. TRAMADOL. [Concomitant]
     Active Substance: TRAMADOL
  3. MEDROL [Concomitant]
     Active Substance: METHYLPREDNISOLONE
  4. KLONOPIN [Suspect]
     Active Substance: CLONAZEPAM
     Indication: ANGIOEDEMA
  5. TRINTELLIX [Concomitant]
     Active Substance: VORTIOXETINE HYDROBROMIDE
  6. ZYRTEC (UNITED STATES) [Concomitant]
     Route: 048
  7. ADDERALL [Concomitant]
     Active Substance: AMPHETAMINE ASPARTATE\AMPHETAMINE SULFATE\DEXTROAMPHETAMINE SACCHARATE\DEXTROAMPHETAMINE SULFATE
  8. KLONOPIN [Suspect]
     Active Substance: CLONAZEPAM
     Indication: URTICARIA
     Route: 065
  9. ALLEGRA [Concomitant]
     Active Substance: FEXOFENADINE HYDROCHLORIDE
     Route: 048
  10. TOPIRAMATE. [Concomitant]
     Active Substance: TOPIRAMATE

REACTIONS (1)
  - Angioedema [Unknown]
